FAERS Safety Report 16398689 (Version 1)
Quarter: 2019Q2

REPORT INFORMATION
  Report Type: Spontaneous
  Country: US (occurrence: US)
  Receive Date: 20190606
  Receipt Date: 20190606
  Transmission Date: 20190711
  Serious: No
  Sender: FDA-Public Use
  Company Number: US-PFIZER INC-2019241893

PATIENT
  Age: 59 Year
  Sex: Male
  Weight: 72.56 kg

DRUGS (2)
  1. ORENCIA [Concomitant]
     Active Substance: ABATACEPT
  2. XELJANZ XR [Suspect]
     Active Substance: TOFACITINIB CITRATE
     Indication: RHEUMATOID ARTHRITIS
     Dosage: 11 MG, DAILY
     Route: 048
     Dates: start: 20190426

REACTIONS (1)
  - Drug ineffective [Unknown]
